FAERS Safety Report 9136885 (Version 1)
Quarter: 2013Q1

REPORT INFORMATION
  Report Type: Spontaneous
  Country: US (occurrence: US)
  Receive Date: 20130304
  Receipt Date: 20130304
  Transmission Date: 20140127
  Serious: Yes (Death)
  Sender: FDA-Public Use
  Company Number: US-NICOBRDEV-2013-03229

PATIENT
  Age: 19 Year
  Sex: Male

DRUGS (7)
  1. TERBINAFINE HYDROCHLORIDE (UNKNOWN) [Suspect]
     Indication: ASPERGILLUS INFECTION
     Dosage: UNK, UNKNOWN
     Route: 065
  2. PENTAMIDINE ISETHIONATE [Suspect]
     Indication: ASPERGILLUS INFECTION
     Dosage: UNK, UNKNOWN
     Route: 065
  3. POSACONAZOLE [Suspect]
     Indication: ASPERGILLUS INFECTION
     Dosage: UNK, UNKNOWN
     Route: 065
  4. MICAFUNGIN [Suspect]
     Indication: ASPERGILLUS INFECTION
     Dosage: UNK, UNKNOWN
     Route: 065
  5. AMBISOME [Suspect]
     Indication: ASPERGILLUS INFECTION
     Dosage: UNK, UNKNOWN
     Route: 065
  6. VORICONAZOLE [Suspect]
     Indication: BRONCHOPULMONARY ASPERGILLOSIS
     Dosage: UNK, UNKNOWN
     Route: 065
  7. ALBENDAZOLE [Concomitant]
     Indication: ASPERGILLUS INFECTION
     Dosage: UNK, UNKNOWN
     Route: 065

REACTIONS (4)
  - Aspergillus infection [Fatal]
  - Pathogen resistance [Fatal]
  - Mental disorder [Fatal]
  - Drug ineffective [Fatal]
